FAERS Safety Report 5819977-2 (Version None)
Quarter: 2008Q3

REPORT INFORMATION
  Report Type: 
  Country: None (occurrence: None)
  Receive Date: 20080721
  Receipt Date: 20080708
  Transmission Date: 20090109
  Serious: Yes (Other)
  Sender: FDA-Public Use
  Company Number: 2008AL004145

PATIENT
  Sex: Male

DRUGS (1)
  1. DIGOXIN [Suspect]
     Indication: CARDIAC OPERATION

REACTIONS (3)
  - ASTHENIA [None]
  - HEART RATE DECREASED [None]
  - THERAPEUTIC AGENT TOXICITY [None]
